FAERS Safety Report 5691058-0 (Version None)
Quarter: 2008Q2

REPORT INFORMATION
  Report Type: 
  Country: None (occurrence: None)
  Receive Date: 20080401
  Receipt Date: 20080320
  Transmission Date: 20081010
  Serious: Yes (Other)
  Sender: FDA-Public Use
  Company Number: DE-PFIZER INC-2008023451

PATIENT
  Sex: Male

DRUGS (5)
  1. DETRUSITOL LA [Suspect]
     Indication: URGE INCONTINENCE
     Route: 048
  2. ALL OTHER THERAPEUTIC PRODUCTS [Concomitant]
     Route: 048
  3. TORSEMIDE [Concomitant]
     Route: 048
  4. BRONCHORETARD [Concomitant]
     Route: 048
  5. ATMADISC [Concomitant]
     Route: 055

REACTIONS (2)
  - BLOOD PRESSURE DECREASED [None]
  - TACHYCARDIA [None]
